FAERS Safety Report 7083215-6 (Version None)
Quarter: 2010Q4

REPORT INFORMATION
  Report Type: 
  Country: None (occurrence: None)
  Receive Date: 20101104
  Receipt Date: 20090304
  Transmission Date: 20110411
  Serious: No
  Sender: FDA-Public Use
  Company Number: US-KINGPHARMUSA00001-K200900233

PATIENT
  Age: 82 Year
  Sex: Male

DRUGS (1)
  1. FLECTOR [Suspect]
     Indication: ARTHRALGIA
     Dosage: 1 PATCH, SINGLE
     Route: 061
     Dates: start: 20090215, end: 20090215

REACTIONS (2)
  - ABDOMINAL PAIN [None]
  - NAUSEA [None]
